FAERS Safety Report 6511148-X (Version None)
Quarter: 2009Q4

REPORT INFORMATION
  Report Type: 
  Country: None (occurrence: None)
  Receive Date: 20091222
  Receipt Date: 20091211
  Transmission Date: 20100525
  Serious: Yes (Other)
  Sender: FDA-Public Use
  Company Number: US-SANOFI-AVENTIS-A03200801194

PATIENT
  Age: 28 Year
  Sex: Male

DRUGS (2)
  1. ZOLPIDEM TARTRATE [Suspect]
     Indication: INSOMNIA
     Dosage: UNIT DOSE: 10 MG
     Route: 048
  2. ZYRTEC [Concomitant]
     Route: 065

REACTIONS (4)
  - FALL [None]
  - IMPAIRED DRIVING ABILITY [None]
  - ROAD TRAFFIC ACCIDENT [None]
  - SOMNAMBULISM [None]
